FAERS Safety Report 24897228 (Version 7)
Quarter: 2025Q3

REPORT INFORMATION
  Report Type: Spontaneous
  Country: US (occurrence: US)
  Receive Date: 20250129
  Receipt Date: 20250722
  Transmission Date: 20251021
  Serious: Yes (Hospitalization, Other)
  Sender: UNITED THERAPEUTICS
  Company Number: US-UNITED THERAPEUTICS-UNT-2024-041589

PATIENT
  Age: 61 Year
  Sex: Female
  Weight: 64.853 kg

DRUGS (12)
  1. REMODULIN [Suspect]
     Active Substance: TREPROSTINIL
     Indication: Pulmonary arterial hypertension
  2. REMODULIN [Suspect]
     Active Substance: TREPROSTINIL
  3. PREDNISONE [Concomitant]
     Active Substance: PREDNISONE
     Indication: Product used for unknown indication
  4. LETAIRIS [Concomitant]
     Active Substance: AMBRISENTAN
     Indication: Product used for unknown indication
  5. SODIUM CHLORIDE [Concomitant]
     Active Substance: SODIUM CHLORIDE
     Indication: Product used for unknown indication
  6. VITAMIN D3 [Concomitant]
     Active Substance: CHOLECALCIFEROL
     Indication: Product used for unknown indication
  7. ELIQUIS [Concomitant]
     Active Substance: APIXABAN
     Indication: Product used for unknown indication
  8. SPIRONOLACTONE [Concomitant]
     Active Substance: SPIRONOLACTONE
     Indication: Product used for unknown indication
  9. LOMOTIL [Concomitant]
     Active Substance: ATROPINE SULFATE\DIPHENOXYLATE HYDROCHLORIDE
     Indication: Product used for unknown indication
  10. ADCIRCA [Concomitant]
     Active Substance: TADALAFIL
     Indication: Product used for unknown indication
  11. FUROSEMIDE [Concomitant]
     Active Substance: FUROSEMIDE
     Indication: Product used for unknown indication
  12. CALCIUM CARBONATE [Concomitant]
     Active Substance: CALCIUM CARBONATE
     Indication: Product used for unknown indication

REACTIONS (36)
  - Respiratory syncytial virus infection [Recovering/Resolving]
  - Dyspnoea at rest [Unknown]
  - Pulmonary arterial hypertension [Unknown]
  - Dyspnoea [Unknown]
  - Fatigue [Not Recovered/Not Resolved]
  - Discouragement [Unknown]
  - Gait disturbance [Unknown]
  - Malaise [Unknown]
  - General physical health deterioration [Not Recovered/Not Resolved]
  - Dyspnoea exertional [Not Recovered/Not Resolved]
  - Cough [Unknown]
  - Device malfunction [Recovered/Resolved]
  - Device malfunction [Recovered/Resolved]
  - Device wireless communication issue [Recovered/Resolved]
  - Device wireless communication issue [Recovered/Resolved]
  - Device occlusion [Recovered/Resolved]
  - Device occlusion [Recovered/Resolved]
  - Device occlusion [Recovered/Resolved]
  - Device issue [Recovered/Resolved]
  - Device issue [Recovered/Resolved]
  - Device malfunction [Recovered/Resolved]
  - Device alarm issue [Recovered/Resolved]
  - Device power source issue [Recovered/Resolved]
  - Device power source issue [Recovered/Resolved]
  - Device use issue [Recovered/Resolved]
  - Device wireless communication issue [Recovered/Resolved]
  - Device malfunction [Recovered/Resolved]
  - Device malfunction [Recovered/Resolved]
  - Device malfunction [Recovered/Resolved]
  - Device alarm issue [Recovered/Resolved]
  - Device occlusion [Recovered/Resolved]
  - Device infusion issue [Recovered/Resolved]
  - Device issue [Not Recovered/Not Resolved]
  - Device issue [Not Recovered/Not Resolved]
  - Device malfunction [Not Recovered/Not Resolved]
  - Device malfunction [Not Recovered/Not Resolved]

NARRATIVE: CASE EVENT DATE: 20241201
